FAERS Safety Report 7928404-0 (Version None)
Quarter: 2011Q4

REPORT INFORMATION
  Report Type: 
  Country: None (occurrence: None)
  Receive Date: 20111118
  Receipt Date: 20111116
  Transmission Date: 20120403
  Serious: Yes (Other)
  Sender: FDA-Public Use
  Company Number: DE-PFIZER INC-2011271781

PATIENT
  Age: 47 Year
  Sex: Female

DRUGS (4)
  1. LYRICA [Suspect]
     Indication: HEADACHE
     Dosage: 75 MG, DAILY
     Route: 048
     Dates: start: 20110401, end: 20110501
  2. LYRICA [Suspect]
     Dosage: 225 MG, DAILY
     Route: 048
     Dates: start: 20110501, end: 20110601
  3. LYRICA [Suspect]
     Dosage: 300 MG, DAILY
     Route: 048
     Dates: start: 20110601
  4. LYRICA [Suspect]
     Dosage: 150 MG, DAILY
     Route: 048
     Dates: start: 20110501, end: 20110501

REACTIONS (3)
  - LYMPHOCYTE COUNT DECREASED [None]
  - TOOTH DELAMINATION [None]
  - PLATELET COUNT DECREASED [None]
